FAERS Safety Report 5415679-5 (Version None)
Quarter: 2007Q3

REPORT INFORMATION
  Report Type: 
  Country: None (occurrence: None)
  Receive Date: 20070815
  Receipt Date: 20070807
  Transmission Date: 20080115
  Serious: Yes (Death, Life-Threatening, Other)
  Sender: FDA-Public Use
  Company Number: US-ASTRAZENECA-2007AC01389

PATIENT
  Age: 16 Year
  Sex: Male

DRUGS (22)
  1. PROPOFOL [Suspect]
     Indication: SEDATION
     Route: 042
  2. PROPOFOL [Suspect]
     Indication: INTRACRANIAL PRESSURE INCREASED
     Route: 042
  3. PROPOFOL [Suspect]
     Indication: ILL-DEFINED DISORDER
     Route: 042
  4. PROPOFOL [Suspect]
     Route: 042
  5. PROPOFOL [Suspect]
     Route: 042
  6. PROPOFOL [Suspect]
     Route: 042
  7. PROPOFOL [Suspect]
     Dosage: INFUSION BETWEEN 6.7 AND 8.33 MG/KG
     Route: 042
  8. PROPOFOL [Suspect]
     Dosage: INFUSION BETWEEN 6.7 AND 8.33 MG/KG
     Route: 042
  9. PROPOFOL [Suspect]
     Dosage: INFUSION BETWEEN 6.7 AND 8.33 MG/KG
     Route: 042
  10. PROPOFOL [Suspect]
     Route: 042
  11. PROPOFOL [Suspect]
     Route: 042
  12. PROPOFOL [Suspect]
     Route: 042
  13. MANNITOL [Concomitant]
     Indication: INTRACRANIAL PRESSURE INCREASED
     Dosage: INTERMITTENT INFUSIONS
  14. PHENYLEPHRINE [Concomitant]
     Indication: BLOOD PRESSURE INCREASED
  15. PHENYLEPHRINE [Concomitant]
     Indication: CEREBRAL HYPOPERFUSION
  16. PHENYLEPHRINE [Concomitant]
  17. PHENYLEPHRINE [Concomitant]
  18. CRYSTALLOIDS [Concomitant]
     Indication: BLOOD PRESSURE INCREASED
  19. CRYSTALLOIDS [Concomitant]
     Indication: CEREBRAL HYPOPERFUSION
  20. BICARBONATE [Concomitant]
  21. ANTIBIOTICS [Concomitant]
  22. MIDAZOLAM HCL [Concomitant]

REACTIONS (7)
  - ARRHYTHMIA [None]
  - CIRCULATORY COLLAPSE [None]
  - METABOLIC ACIDOSIS [None]
  - PROPOFOL INFUSION SYNDROME [None]
  - RENAL FAILURE ACUTE [None]
  - RHABDOMYOLYSIS [None]
  - TACHYCARDIA [None]
